FAERS Safety Report 7716091-6 (Version None)
Quarter: 2011Q3

REPORT INFORMATION
  Report Type: 
  Country: None (occurrence: None)
  Receive Date: 20110829
  Receipt Date: 20110517
  Transmission Date: 20111222
  Serious: Yes (Hospitalization)
  Sender: FDA-Public Use
  Company Number: US-GLAXOSMITHKLINE-A0928865A

PATIENT
  Age: 50 Year
  Sex: Male

DRUGS (1)
  1. AVANDIA [Suspect]
     Indication: DIABETES MELLITUS
     Dosage: 4MG PER DAY
     Route: 048
     Dates: start: 20090101, end: 20110310

REACTIONS (6)
  - CORONARY ARTERY DISEASE [None]
  - ANGIOPLASTY [None]
  - ARTERIOSCLEROSIS [None]
  - CHEST PAIN [None]
  - DYSPNOEA [None]
  - STENT PLACEMENT [None]
